FAERS Safety Report 7457351-6 (Version None)
Quarter: 2011Q1

REPORT INFORMATION
  Report Type: 
  Country: None (occurrence: None)
  Receive Date: 20110302
  Receipt Date: 20101103
  Transmission Date: 20110831
  Serious: No
  Sender: FDA-Public Use
  Company Number: 021539

PATIENT
  Sex: Female
  Weight: 63 kg

DRUGS (7)
  1. ENTOCORT EC [Concomitant]
  2. BENTYL [Concomitant]
  3. C-VITAMIN [Concomitant]
  4. CIMZIA [Suspect]
     Indication: CROHN'S DISEASE
     Dosage: (TWO SHOTS SUBCUTANEOUS)
     Route: 058
     Dates: start: 20101012
  5. VITAMIN A [Concomitant]
  6. BIOTIN [Concomitant]
  7. MULTI-VITAMINS [Concomitant]

REACTIONS (1)
  - INJECTION SITE REACTION [None]
